FAERS Safety Report 22383941 (Version 1)
Quarter: 2023Q2

REPORT INFORMATION
  Report Type: Spontaneous
  Country: US (occurrence: US)
  Receive Date: 20230530
  Receipt Date: 20230530
  Transmission Date: 20230722
  Serious: Yes (Other)
  Sender: FDA-Public Use
  Company Number: US-JNJFOC-20230548891

PATIENT
  Sex: Female

DRUGS (1)
  1. INVEGA [Suspect]
     Active Substance: PALIPERIDONE
     Indication: Hormone level abnormal
     Route: 048

REACTIONS (15)
  - Paralysis [Recovered/Resolved]
  - Lower limb fracture [Unknown]
  - Ulcer haemorrhage [Unknown]
  - Tooth infection [Unknown]
  - Chest pain [Unknown]
  - Renal disorder [Unknown]
  - Gastrooesophageal reflux disease [Unknown]
  - Thyroid disorder [Unknown]
  - Hypoacusis [Unknown]
  - Incoherent [Unknown]
  - Thinking abnormal [Unknown]
  - Off label use [Unknown]
  - Musculoskeletal stiffness [Unknown]
  - Oedema peripheral [Unknown]
  - Micturition urgency [Unknown]
